FAERS Safety Report 18789527 (Version 2)
Quarter: 2021Q1

REPORT INFORMATION
  Report Type: Spontaneous
  Country: US (occurrence: US)
  Receive Date: 20210125
  Receipt Date: 20210212
  Transmission Date: 20210419
  Serious: Yes (Other)
  Sender: FDA-Public Use
  Company Number: US-DRREDDYS-USA/USA/21/0131147

PATIENT
  Age: 50 Year
  Sex: Male

DRUGS (4)
  1. DOXORUBICIN HYDROCHLORIDE LIPOSOME INJECTION 20 MG/10 ML (2 MG/ML) AND [Suspect]
     Active Substance: DOXORUBICIN HYDROCHLORIDE
     Indication: LIPOSARCOMA
  2. DENOSUMAB [Concomitant]
     Active Substance: DENOSUMAB
     Indication: SOFT TISSUE SARCOMA
     Route: 058
  3. DENOSUMAB [Concomitant]
     Active Substance: DENOSUMAB
     Indication: LIPOSARCOMA
  4. DOXORUBICIN HYDROCHLORIDE LIPOSOME INJECTION 20 MG/10 ML (2 MG/ML) AND [Suspect]
     Active Substance: DOXORUBICIN HYDROCHLORIDE
     Indication: SOFT TISSUE SARCOMA

REACTIONS (6)
  - Toxicity to various agents [Unknown]
  - Thrombotic microangiopathy [Unknown]
  - Renal failure [Unknown]
  - Nephropathy toxic [Unknown]
  - Renal vascular thrombosis [Unknown]
  - Chronic kidney disease [Unknown]
